FAERS Safety Report 5680863-2 (Version None)
Quarter: 2008Q1

REPORT INFORMATION
  Report Type: 
  Country: None (occurrence: None)
  Receive Date: 20080326
  Receipt Date: 20080314
  Transmission Date: 20080703
  Serious: Yes (Other)
  Sender: FDA-Public Use
  Company Number: US-PFIZER INC-2008024664

PATIENT
  Sex: Female
  Weight: 54.545 kg

DRUGS (2)
  1. AZULFIDINE EN-TABS [Suspect]
     Indication: ANKYLOSING SPONDYLITIS
     Dosage: DAILY DOSE:2MG
     Dates: start: 20051201, end: 20080305
  2. FOSAMAX [Concomitant]

REACTIONS (4)
  - DECREASED INTEREST [None]
  - HYPERVIGILANCE [None]
  - MALAISE [None]
  - SEDATION [None]
